FAERS Safety Report 18541301 (Version 1)
Quarter: 2020Q4

REPORT INFORMATION
  Report Type: Spontaneous
  Country: US (occurrence: US)
  Receive Date: 20201124
  Receipt Date: 20201124
  Transmission Date: 20210114
  Serious: No
  Sender: FDA-Public Use
  Company Number: US-AIMMUNE THERAPEUTICS, INC.-2020AIMT00297

PATIENT

DRUGS (4)
  1. PALFORZIA [Suspect]
     Active Substance: PEANUT
     Dosage: 2 UNK, 1X/DAY
  2. PALFORZIA [Suspect]
     Active Substance: PEANUT
     Dosage: UP-DOSING, 3 MG
     Route: 048
     Dates: start: 20200828, end: 20200910
  3. PALFORZIA [Suspect]
     Active Substance: PEANUT
     Dosage: 6 MG, UPDOSING
     Route: 048
     Dates: start: 20200911, end: 20200915
  4. PALFORZIA [Suspect]
     Active Substance: PEANUT
     Indication: FOOD ALLERGY
     Dosage: 0.5-6MG, INITIAL DOSE ESCALATION
     Route: 048
     Dates: start: 20200826, end: 20200826

REACTIONS (1)
  - Vomiting [Not Recovered/Not Resolved]

NARRATIVE: CASE EVENT DATE: 20200911
